FAERS Safety Report 18290888 (Version 2)
Quarter: 2020Q4

REPORT INFORMATION
  Report Type: Spontaneous
  Country: JP (occurrence: JP)
  Receive Date: 20200921
  Receipt Date: 20201014
  Transmission Date: 20210113
  Serious: Yes (Hospitalization, Other)
  Sender: FDA-Public Use
  Company Number: JP-JNJFOC-20200927552

PATIENT
  Age: 9 Decade
  Sex: Female

DRUGS (9)
  1. LIMAPROST ALFADEX [Concomitant]
     Active Substance: LIMAPROST
  2. TOCOPHEROL [Concomitant]
     Active Substance: TOCOPHEROL
  3. VERAPAMIL HYDROCHLORIDE. [Concomitant]
     Active Substance: VERAPAMIL HYDROCHLORIDE
  4. TAKECAB [Concomitant]
     Active Substance: VONOPRAZAN FUMARATE
  5. FUROSEMIDE. [Concomitant]
     Active Substance: FUROSEMIDE
  6. MAGNESIUM OXIDE. [Concomitant]
     Active Substance: MAGNESIUM OXIDE
  7. HALFDIGOXIN [Concomitant]
     Active Substance: DIGOXIN
  8. XARELTO [Suspect]
     Active Substance: RIVAROXABAN
     Indication: PRODUCT USED FOR UNKNOWN INDICATION
     Dosage: 10 MG, QD
     Route: 048
     Dates: end: 20200820
  9. LOXONIN [Concomitant]
     Active Substance: LOXOPROFEN SODIUM

REACTIONS (3)
  - Thrombosis [Unknown]
  - Gastrointestinal haemorrhage [Recovered/Resolved with Sequelae]
  - Haematochezia [Recovered/Resolved with Sequelae]
